FAERS Safety Report 26060153 (Version 4)
Quarter: 2025Q4

REPORT INFORMATION
  Report Type: Spontaneous
  Country: BR (occurrence: BR)
  Receive Date: 20251118
  Receipt Date: 20251212
  Transmission Date: 20260118
  Serious: No
  Sender: NOVARTIS
  Company Number: BR-002147023-NVSC2025BR176446

PATIENT
  Sex: Female

DRUGS (1)
  1. GILENYA [Suspect]
     Active Substance: FINGOLIMOD HYDROCHLORIDE
     Indication: Product used for unknown indication
     Dosage: UNK
     Route: 065

REACTIONS (1)
  - Disease progression [Recovered/Resolved]
